FAERS Safety Report 7744562-5 (Version None)
Quarter: 2011Q3

REPORT INFORMATION
  Report Type: 
  Country: None (occurrence: None)
  Receive Date: 20110912
  Receipt Date: 20110908
  Transmission Date: 20111222
  Serious: Yes (Other)
  Sender: FDA-Public Use
  Company Number: US-PFIZER INC-2011211053

PATIENT
  Age: 77 Year
  Sex: Female

DRUGS (1)
  1. LIPITOR [Suspect]
     Dosage: 40 MG, UNK

REACTIONS (2)
  - GAIT DISTURBANCE [None]
  - MUSCULAR WEAKNESS [None]
